FAERS Safety Report 24784316 (Version 2)
Quarter: 2025Q1

REPORT INFORMATION
  Report Type: Spontaneous
  Country: GB (occurrence: GB)
  Receive Date: 20241227
  Receipt Date: 20250123
  Transmission Date: 20250408
  Serious: No
  Sender: MYLAN
  Company Number: GB-MYLANLABS-2024M1114972

PATIENT
  Sex: Female

DRUGS (1)
  1. EPIPEN [Suspect]
     Active Substance: EPINEPHRINE
     Indication: Product used for unknown indication
     Route: 065

REACTIONS (1)
  - Product quality issue [None]

NARRATIVE: CASE EVENT DATE: 20241207
